FAERS Safety Report 6164929-9 (Version None)
Quarter: 2009Q2

REPORT INFORMATION
  Report Type: 
  Country: None (occurrence: None)
  Receive Date: 20090423
  Receipt Date: 20090303
  Transmission Date: 20091009
  Serious: No
  Sender: FDA-Public Use
  Company Number: US-BAYER-200912062NA

PATIENT
  Age: 52 Year
  Sex: Female
  Weight: 73 kg

DRUGS (2)
  1. CLIMARA [Suspect]
     Indication: HORMONE REPLACEMENT THERAPY
     Route: 062
     Dates: start: 20070101
  2. CLIMARA [Suspect]
     Route: 062

REACTIONS (3)
  - APPLICATION SITE URTICARIA [None]
  - PRODUCT QUALITY ISSUE [None]
  - WEIGHT INCREASED [None]
